FAERS Safety Report 16942115 (Version 2)
Quarter: 2019Q4

REPORT INFORMATION
  Report Type: Report from Study
  Country: US (occurrence: US)
  Receive Date: 20191021
  Receipt Date: 20191024
  Transmission Date: 20200122
  Serious: No
  Sender: FDA-Public Use
  Company Number: US-BEH-2019108259

PATIENT
  Age: 75 Year
  Sex: Male
  Weight: 81.18 kg

DRUGS (2)
  1. HAEGARDA [Suspect]
     Active Substance: HUMAN C1-ESTERASE INHIBITOR
     Indication: HEREDITARY ANGIOEDEMA
     Dosage: 4000 INTERNATIONAL UNIT, BIW
     Route: 058
     Dates: start: 20191008
  2. HAEGARDA [Suspect]
     Active Substance: HUMAN C1-ESTERASE INHIBITOR
     Indication: PROPHYLAXIS
     Dosage: 4000 INTERNATIONAL UNIT, TOT
     Route: 058
     Dates: start: 20191011, end: 20191011

REACTIONS (5)
  - Fatigue [Unknown]
  - Diarrhoea [Recovered/Resolved]
  - Lethargy [Recovered/Resolved]
  - Hypersomnia [Unknown]
  - Nausea [Recovered/Resolved]

NARRATIVE: CASE EVENT DATE: 201910
